FAERS Safety Report 7553850-7 (Version None)
Quarter: 2011Q2

REPORT INFORMATION
  Report Type: 
  Country: None (occurrence: None)
  Receive Date: 20110617
  Receipt Date: 20110613
  Transmission Date: 20111010
  Serious: Yes (Other)
  Sender: FDA-Public Use
  Company Number: US-BRISTOL-MYERS SQUIBB COMPANY-15824519

PATIENT
  Age: 85 Year
  Sex: Female
  Weight: 58 kg

DRUGS (4)
  1. GLUCOTROL [Concomitant]
  2. GLUCOPHAGE [Suspect]
     Dosage: RX: 0813874
  3. JANUVIA [Suspect]
     Dosage: WITHDRAWN
  4. LIPITOR [Concomitant]

REACTIONS (2)
  - REGURGITATION [None]
  - HAEMORRHAGE [None]
